FAERS Safety Report 6155195-9 (Version None)
Quarter: 2009Q2

REPORT INFORMATION
  Report Type: 
  Country: None (occurrence: None)
  Receive Date: 20090415
  Receipt Date: 20090403
  Transmission Date: 20091009
  Serious: Yes (Other)
  Sender: FDA-Public Use
  Company Number: FR-JNJFOC-20090305679

PATIENT
  Age: 33 Year
  Sex: Male
  Weight: 184 kg

DRUGS (3)
  1. REMICADE [Suspect]
     Indication: COLITIS ULCERATIVE
     Dosage: 30 INFUSIONS
     Route: 042
  2. IMUREL [Suspect]
     Indication: COLITIS ULCERATIVE
     Dosage: DRUG DURATION OF MORE THAN ONE YEAR; 2.5 TABLETS DAILY
     Route: 048
  3. DOLIPRANE [Concomitant]
     Dosage: AS NEEDED
     Route: 048

REACTIONS (2)
  - ERYTHEMA MULTIFORME [None]
  - HERPES SIMPLEX [None]
